FAERS Safety Report 5473550-7 (Version None)
Quarter: 2007Q4

REPORT INFORMATION
  Report Type: 
  Country: None (occurrence: None)
  Receive Date: 20071001
  Receipt Date: 20070504
  Transmission Date: 20080405
  Serious: No
  Sender: FDA-Public Use
  Company Number: US-ASTRAZENECA-2007UW09687

PATIENT
  Age: 81 Year
  Sex: Female
  Weight: 59 kg

DRUGS (4)
  1. ARIMIDEX [Suspect]
     Indication: BREAST CANCER
     Route: 048
     Dates: start: 20051201
  2. ANTIHYPERTENSIVE MEDICATION [Concomitant]
  3. ANTIDEPRESSANT [Concomitant]
  4. INHALER [Concomitant]

REACTIONS (6)
  - BODY HEIGHT DECREASED [None]
  - DEPRESSION [None]
  - ONYCHOCLASIS [None]
  - OSTEOARTHRITIS [None]
  - WEIGHT DECREASED [None]
  - WEIGHT INCREASED [None]
